FAERS Safety Report 6824953-7 (Version None)
Quarter: 2010Q3

REPORT INFORMATION
  Report Type: 
  Country: None (occurrence: None)
  Receive Date: 20100708
  Receipt Date: 20061227
  Transmission Date: 20110219
  Serious: No
  Sender: FDA-Public Use
  Company Number: US-PFIZER INC-2007001066

PATIENT
  Sex: Female
  Weight: 37.19 kg

DRUGS (6)
  1. CHANTIX [Suspect]
     Indication: SMOKING CESSATION THERAPY
     Route: 048
     Dates: start: 20061201, end: 20061201
  2. RITALIN [Concomitant]
     Route: 048
  3. CRESTOR [Concomitant]
     Route: 048
  4. ACETYLSALICYLIC ACID [Concomitant]
     Route: 048
  5. ZOLOFT [Concomitant]
     Route: 048
  6. XANAX [Concomitant]
     Route: 048

REACTIONS (1)
  - VOMITING [None]
